FAERS Safety Report 20687473 (Version 1)
Quarter: 2022Q2

REPORT INFORMATION
  Report Type: Report from Study
  Country: JP (occurrence: JP)
  Receive Date: 20220408
  Receipt Date: 20220408
  Transmission Date: 20220721
  Serious: Yes (Death, Life-Threatening, Other)
  Sender: FDA-Public Use
  Company Number: JP-CELGENE-JPN-20200303628

PATIENT
  Age: 69 Year
  Sex: Female
  Weight: 41.3 kg

DRUGS (4)
  1. ISTODAX [Suspect]
     Active Substance: ROMIDEPSIN
     Indication: Angioimmunoblastic T-cell lymphoma
     Route: 041
     Dates: start: 20200129, end: 20200205
  2. SULFAMETHOXAZOLE\TRIMETHOPRIM [Concomitant]
     Active Substance: SULFAMETHOXAZOLE\TRIMETHOPRIM
     Indication: Prophylaxis
     Route: 048
     Dates: start: 20161013, end: 20200211
  3. FLUCONAZOLE [Concomitant]
     Active Substance: FLUCONAZOLE
     Indication: Prophylaxis
     Route: 048
     Dates: start: 20161013, end: 20200211
  4. VALGANCICLOVIR [Concomitant]
     Active Substance: VALGANCICLOVIR
     Indication: Prophylaxis
     Dosage: FREQUENCY TEXT: UNKNOWN?UNKNOWN
     Route: 048
     Dates: start: 20190627, end: 20200211

REACTIONS (9)
  - Liver disorder [Not Recovered/Not Resolved]
  - White blood cell count decreased [Not Recovered/Not Resolved]
  - Neutrophil count decreased [Not Recovered/Not Resolved]
  - Lymphocyte count decreased [Not Recovered/Not Resolved]
  - Platelet count decreased [Not Recovered/Not Resolved]
  - Angioimmunoblastic T-cell lymphoma [Fatal]
  - Upper gastrointestinal haemorrhage [Not Recovered/Not Resolved]
  - Hepatic mass [Not Recovered/Not Resolved]
  - Cytomegalovirus infection [Not Recovered/Not Resolved]

NARRATIVE: CASE EVENT DATE: 20200130
